FAERS Safety Report 7559004-2 (Version None)
Quarter: 2011Q2

REPORT INFORMATION
  Report Type: 
  Country: None (occurrence: None)
  Receive Date: 20110621
  Receipt Date: 20110617
  Transmission Date: 20111010
  Serious: No
  Sender: FDA-Public Use
  Company Number: US-PFIZER INC-2011134217

PATIENT
  Sex: Male
  Weight: 100 kg

DRUGS (2)
  1. AZITHROMYCIN [Suspect]
     Indication: LYME DISEASE
     Dosage: 500 MG, DAILY
     Route: 048
     Dates: start: 20110501
  2. MULTI-VITAMINS [Concomitant]
     Dosage: UNK

REACTIONS (1)
  - TINNITUS [None]
